FAERS Safety Report 10174498 (Version 1)
Quarter: 2014Q2

REPORT INFORMATION
  Report Type: Report from Study
  Country: AU (occurrence: AU)
  Receive Date: 20140515
  Receipt Date: 20140515
  Transmission Date: 20141212
  Serious: Yes (Other)
  Sender: FDA-Public Use
  Company Number: AU-VERTEX PHARMACEUTICALS INC-2014-002309

PATIENT
  Sex: Female
  Weight: 72.5 kg

DRUGS (5)
  1. TELAPREVIR [Suspect]
     Indication: HEPATITIS C
     Dosage: 1125 MG, BID
     Route: 048
     Dates: start: 20140317
  2. PEGETRON [Concomitant]
     Indication: HEPATITIS C
     Dosage: 120 ?G, QW
     Route: 058
     Dates: start: 20140317
  3. REBETOL [Concomitant]
     Indication: HEPATITIS C
     Dosage: SPLIT DOSE
     Dates: start: 20140317
  4. MAXOLON [Concomitant]
     Indication: NAUSEA
     Dates: start: 20140326
  5. MIRTAZAPINE [Concomitant]
     Indication: INSOMNIA
     Dates: start: 20140403

REACTIONS (1)
  - Hearing impaired [Not Recovered/Not Resolved]
